FAERS Safety Report 20345347 (Version 5)
Quarter: 2022Q1

REPORT INFORMATION
  Report Type: Spontaneous
  Country: US (occurrence: US)
  Receive Date: 20220118
  Receipt Date: 20220225
  Transmission Date: 20220423
  Serious: Yes (Other)
  Sender: FDA-Public Use
  Company Number: US-BAYER-2022A006565

PATIENT
  Age: 24 Year
  Sex: Female
  Weight: 114.7 kg

DRUGS (1)
  1. KYLEENA [Suspect]
     Active Substance: LEVONORGESTREL
     Indication: Contraception
     Dosage: 17.5?G/DAY
     Route: 015
     Dates: start: 20210217, end: 20220107

REACTIONS (5)
  - Device breakage [Recovered/Resolved]
  - Embedded device [Recovered/Resolved]
  - Genital haemorrhage [Unknown]
  - Abdominal pain lower [Recovered/Resolved]
  - Complication of device removal [None]

NARRATIVE: CASE EVENT DATE: 20220107
